FAERS Safety Report 6694999-0 (Version None)
Quarter: 2010Q2

REPORT INFORMATION
  Report Type: 
  Country: None (occurrence: None)
  Receive Date: 20100423
  Receipt Date: 20100412
  Transmission Date: 20101027
  Serious: Yes (Other)
  Sender: FDA-Public Use
  Company Number: PHHY2010DE09082

PATIENT
  Sex: Male
  Weight: 125 kg

DRUGS (3)
  1. EXFORGE [Suspect]
     Indication: HYPERTENSION
     Dosage: 160/5 MG
     Route: 048
     Dates: start: 20090705, end: 20100313
  2. EXFORGE [Suspect]
     Dosage: 160/10 MG DAILY
     Route: 048
     Dates: start: 20090705, end: 20100313
  3. HYDROCHLOROTHIAZIDE [Concomitant]
     Indication: HYPERTENSION
     Dosage: 12.5 MG PER DAY
     Dates: start: 20100219, end: 20100312

REACTIONS (4)
  - ARTHROSCOPY [None]
  - JOINT SWELLING [None]
  - OEDEMA [None]
  - OEDEMA PERIPHERAL [None]
